FAERS Safety Report 7906754-1 (Version None)
Quarter: 2011Q4

REPORT INFORMATION
  Report Type: 
  Country: None (occurrence: None)
  Receive Date: 20111110
  Receipt Date: 20111031
  Transmission Date: 20120403
  Serious: Yes (Hospitalization, Disabling)
  Sender: FDA-Public Use
  Company Number: TR-TEVA-307955ISR

PATIENT
  Age: 47 Year
  Sex: Male

DRUGS (4)
  1. ISOFLURANE [Concomitant]
     Indication: GENERAL ANAESTHESIA
  2. PROPOFOL [Concomitant]
     Indication: GENERAL ANAESTHESIA
  3. SERTRALINE HYDROCHLORIDE [Suspect]
     Dosage: 100 MILLIGRAM;
  4. MIVACURIUM CHLORIDE [Interacting]
     Indication: ENDOTRACHEAL INTUBATION

REACTIONS (1)
  - NEUROMUSCULAR BLOCKADE [None]
